FAERS Safety Report 7079414-X (Version None)
Quarter: 2010Q4

REPORT INFORMATION
  Report Type: 
  Country: None (occurrence: None)
  Receive Date: 20101102
  Receipt Date: 20101026
  Transmission Date: 20110411
  Serious: Yes (Life-Threatening, Disabling, Other)
  Sender: FDA-Public Use
  Company Number: US-MERCK-0407USA01702

PATIENT
  Sex: Female

DRUGS (4)
  1. MEVACOR [Suspect]
     Indication: BLOOD CHOLESTEROL INCREASED
     Route: 048
     Dates: start: 19870101, end: 19971001
  2. PREDNISONE [Concomitant]
     Route: 065
  3. QUESTRAN [Concomitant]
     Route: 065
  4. VERELAN [Concomitant]
     Route: 065

REACTIONS (14)
  - ADVERSE EVENT [None]
  - DIARRHOEA [None]
  - DYSPNOEA [None]
  - ERYTHEMA [None]
  - FUNGAL INFECTION [None]
  - HOT FLUSH [None]
  - HYPERSENSITIVITY [None]
  - IMMUNE SYSTEM DISORDER [None]
  - INSOMNIA [None]
  - MUSCLE INJURY [None]
  - MUSCULAR WEAKNESS [None]
  - ROTATOR CUFF SYNDROME [None]
  - TACHYCARDIA [None]
  - URINARY TRACT INFECTION [None]
